FAERS Safety Report 12136254 (Version 1)
Quarter: 2016Q1

REPORT INFORMATION
  Report Type: Spontaneous
  Country: US (occurrence: None)
  Receive Date: 20160301
  Receipt Date: 20160301
  Transmission Date: 20160526
  Serious: No
  Sender: FDA-Public Use
  Company Number: None

PATIENT
  Age: 50 Year
  Sex: Male

DRUGS (3)
  1. MELOXICAM. [Concomitant]
     Active Substance: MELOXICAM
  2. OXYCODONE [Concomitant]
     Active Substance: OXYCODONE
  3. XELJANZ [Suspect]
     Active Substance: TOFACITINIB CITRATE
     Indication: RHEUMATOID ARTHRITIS
     Route: 048
     Dates: start: 20140807, end: 20160208

REACTIONS (2)
  - Herpes zoster [None]
  - White blood cell count decreased [None]

NARRATIVE: CASE EVENT DATE: 20160208
